FAERS Safety Report 8920285 (Version 2)
Quarter: 2013Q1

REPORT INFORMATION
  Report Type: Spontaneous
  Country: US (occurrence: US)
  Receive Date: 20121122
  Receipt Date: 20130301
  Transmission Date: 20140127
  Serious: Yes (Other)
  Sender: FDA-Public Use
  Company Number: US-ROCHE-1112492

PATIENT
  Age: 44 Year
  Sex: Female
  Weight: 56.75 kg

DRUGS (2)
  1. ACCUTANE [Suspect]
     Indication: ACNE
     Route: 048
     Dates: start: 20021201, end: 20030414
  2. LAMICTAL [Concomitant]

REACTIONS (6)
  - Colitis ulcerative [Unknown]
  - Large intestine polyp [Unknown]
  - Irritable bowel syndrome [Unknown]
  - Depression [Unknown]
  - Dry skin [Unknown]
  - Lip dry [Unknown]
